FAERS Safety Report 10221535 (Version 3)
Quarter: 2014Q2

REPORT INFORMATION
  Report Type: Spontaneous
  Country: US (occurrence: US)
  Receive Date: 20140606
  Receipt Date: 20140624
  Transmission Date: 20141212
  Serious: Yes (Death, Hospitalization, Other)
  Sender: FDA-Public Use
  Company Number: US-BAXTER-2014BAX027264

PATIENT
  Sex: Male

DRUGS (1)
  1. DIANEAL LOW CALCIUM [Suspect]
     Indication: PERITONEAL DIALYSIS
     Route: 033
     Dates: start: 2013, end: 201405

REACTIONS (7)
  - Cardiopulmonary failure [Fatal]
  - Cardiac failure [Fatal]
  - Sepsis [Fatal]
  - Chronic obstructive pulmonary disease [Fatal]
  - Fall [Unknown]
  - Hip fracture [Unknown]
  - Multi-organ failure [Unknown]
